FAERS Safety Report 8991116 (Version 1)
Quarter: 2012Q4

REPORT INFORMATION
  Report Type: Spontaneous
  Country: US (occurrence: None)
  Receive Date: 20121227
  Receipt Date: 20121227
  Transmission Date: 20130627
  Serious: Yes (Other)
  Sender: FDA-Public Use
  Company Number: None

PATIENT
  Sex: Female
  Weight: 92.53 kg

DRUGS (2)
  1. XELODA [Suspect]
     Indication: BREAST CANCER
     Route: 048
     Dates: start: 20120302, end: 20121011
  2. XELODA [Suspect]
     Indication: BREAST CANCER
     Dates: start: 20121126, end: 20121209

REACTIONS (7)
  - Oedema peripheral [None]
  - Oedema peripheral [None]
  - Skin disorder [None]
  - Erythema [None]
  - Swelling [None]
  - Pain [None]
  - Tumour marker increased [None]
